FAERS Safety Report 20245054 (Version 1)
Quarter: 2021Q4

REPORT INFORMATION
  Report Type: Spontaneous
  Country: US (occurrence: US)
  Receive Date: 20211229
  Receipt Date: 20211229
  Transmission Date: 20220303
  Serious: Yes (Other)
  Sender: FDA-Public Use
  Company Number: US-STRIDES ARCOLAB LIMITED-2021SP004471

PATIENT

DRUGS (1)
  1. ACETAZOLAMIDE [Suspect]
     Active Substance: ACETAZOLAMIDE
     Indication: Idiopathic intracranial hypertension
     Dosage: 3 GRAM, DAILY (HIGH-DOSE)
     Route: 065

REACTIONS (2)
  - Drug ineffective for unapproved indication [Unknown]
  - Paraesthesia [Recovered/Resolved]
